FAERS Safety Report 21143188 (Version 1)
Quarter: 2022Q3

REPORT INFORMATION
  Report Type: Report from Study
  Country: IN (occurrence: IN)
  Receive Date: 20220728
  Receipt Date: 20220728
  Transmission Date: 20221027
  Serious: Yes (Other)
  Sender: FDA-Public Use
  Company Number: IN-NOVARTISPH-NVSC2022IN169455

PATIENT
  Age: 27 Year
  Sex: Male

DRUGS (1)
  1. ELTROMBOPAG OLAMINE [Suspect]
     Active Substance: ELTROMBOPAG OLAMINE
     Indication: Immune thrombocytopenia
     Dosage: 50 MG, OTHER (5 DAYS A WEEK)
     Route: 065
     Dates: start: 20220221

REACTIONS (2)
  - Diabetes mellitus [Unknown]
  - Hypertension [Unknown]

NARRATIVE: CASE EVENT DATE: 20220221
